FAERS Safety Report 7415068-8 (Version None)
Quarter: 2011Q2

REPORT INFORMATION
  Report Type: 
  Country: None (occurrence: None)
  Receive Date: 20110414
  Receipt Date: 20110406
  Transmission Date: 20111010
  Serious: Yes (Other)
  Sender: FDA-Public Use
  Company Number: JP-ROCHE-769914

PATIENT
  Sex: Female

DRUGS (6)
  1. ACTEMRA [Suspect]
     Indication: JUVENILE ARTHRITIS
     Dosage: DOSAGE IS UNCERTAIN
     Route: 041
     Dates: start: 20100309
  2. JUVELA NICOTINATE [Concomitant]
     Dosage: FORM: PERORAL AGENT, DOSAGE IS UNCERTAIN
     Route: 048
     Dates: start: 20110101, end: 20110301
  3. RHEUMATREX [Concomitant]
     Route: 048
  4. NAIXAN [Concomitant]
     Dosage: DOSAGE IS UNCERTAIN
     Route: 048
  5. SINGULAIR [Concomitant]
     Dosage: DRUG: SINGULAIR(MONTELUKAST SODIUM), DOSAGE IS UNCERTAIN.
     Route: 048
  6. NAIXAN [Concomitant]
     Route: 048

REACTIONS (1)
  - INTERSTITIAL LUNG DISEASE [None]
